FAERS Safety Report 13959302 (Version 2)
Quarter: 2017Q4

REPORT INFORMATION
  Report Type: Spontaneous
  Country: JP (occurrence: JP)
  Receive Date: 20170911
  Receipt Date: 20171002
  Transmission Date: 20180320
  Serious: Yes (Death, Disabling)
  Sender: FDA-Public Use
  Company Number: JP-ABBVIE-17P-087-2096408-00

PATIENT
  Age: 59 Year
  Sex: Male

DRUGS (1)
  1. ADALIMUMAB [Suspect]
     Active Substance: ADALIMUMAB
     Indication: PSORIASIS
     Route: 058

REACTIONS (2)
  - Renal impairment [Unknown]
  - Putamen haemorrhage [Fatal]
